FAERS Safety Report 5942618-0 (Version None)
Quarter: 2008Q4

REPORT INFORMATION
  Report Type: 
  Country: None (occurrence: None)
  Receive Date: 20081103
  Receipt Date: 20081023
  Transmission Date: 20090506
  Serious: Yes (Life-Threatening, Hospitalization)
  Sender: FDA-Public Use
  Company Number: DSA_32595_2008

PATIENT
  Age: 75 Year
  Sex: Female

DRUGS (8)
  1. ENALAPRIL MALEATE [Suspect]
     Indication: DRUG USE FOR UNKNOWN INDICATION
     Dosage: DF ORAL
     Route: 048
  2. EUNERPAN (EUNERPAN - MELPERONE HCL) (NOT SPECIFIED) [Suspect]
     Indication: DEMENTIA ALZHEIMER'S TYPE
     Dosage: DF
     Dates: start: 20030109, end: 20030109
  3. SORTIS /01326102/ [Concomitant]
  4. ASPIRIN [Concomitant]
  5. AQUAPHOR /00298701/ [Concomitant]
  6. DOGMATIL [Concomitant]
  7. CIPRAMIL /00582602/ [Concomitant]
  8. EXELON /01383201/ [Concomitant]

REACTIONS (7)
  - BLOOD GLUCOSE INCREASED [None]
  - BLOOD PRESSURE DIASTOLIC DECREASED [None]
  - BLOOD SODIUM DECREASED [None]
  - BODY TEMPERATURE INCREASED [None]
  - DRUG INTERACTION [None]
  - FALL [None]
  - LOSS OF CONSCIOUSNESS [None]
